FAERS Safety Report 5347101-1 (Version None)
Quarter: 2007Q2

REPORT INFORMATION
  Report Type: 
  Country: None (occurrence: None)
  Receive Date: 20070604
  Receipt Date: 20070529
  Transmission Date: 20071010
  Serious: Yes (Life-Threatening, Hospitalization)
  Sender: FDA-Public Use
  Company Number: 2007EN000043

PATIENT
  Age: 5 Year
  Sex: Female
  Weight: 26.2 kg

DRUGS (1)
  1. ONCASPAR [Suspect]
     Indication: DRUG USE FOR UNKNOWN INDICATION
     Dosage: 2265 IU; IM
     Route: 030
     Dates: start: 20060113, end: 20060306

REACTIONS (5)
  - COUGH [None]
  - LIP SWELLING [None]
  - OXYGEN SATURATION DECREASED [None]
  - PRURITUS [None]
  - URTICARIA [None]
